FAERS Safety Report 25883082 (Version 1)
Quarter: 2025Q4

REPORT INFORMATION
  Report Type: Spontaneous
  Country: US (occurrence: US)
  Receive Date: 20251006
  Receipt Date: 20251006
  Transmission Date: 20260118
  Serious: No
  Sender: ROCHE
  Company Number: US-ROCHE-10000400989

PATIENT
  Sex: Female

DRUGS (5)
  1. XOLAIR PFS [Suspect]
     Active Substance: OMALIZUMAB
     Indication: Product used for unknown indication
     Dosage: 300 MG/2ML
     Route: 058
     Dates: start: 202507
  2. XOLAIR PFS [Suspect]
     Active Substance: OMALIZUMAB
  3. CROMOLYN SODIUM [Concomitant]
     Active Substance: CROMOLYN SODIUM
  4. KETOTIFEN [Concomitant]
     Active Substance: KETOTIFEN
  5. RUCONEST SDV [Concomitant]

REACTIONS (6)
  - Pruritus [Unknown]
  - Chills [Unknown]
  - Flushing [Unknown]
  - Paraesthesia oral [Unknown]
  - Wheezing [Unknown]
  - Off label use [Unknown]
